FAERS Safety Report 18547639 (Version 3)
Quarter: 2022Q1

REPORT INFORMATION
  Report Type: Report from Study
  Country: US (occurrence: US)
  Receive Date: 20201125
  Receipt Date: 20220325
  Transmission Date: 20220423
  Serious: Yes (Hospitalization)
  Sender: FDA-Public Use
  Company Number: US-ALKERMES INC.-ALK-2020-005245

PATIENT
  Age: 68 Year
  Sex: Male
  Weight: 106 kg

DRUGS (28)
  1. VIVITROL [Suspect]
     Active Substance: NALTREXONE
     Indication: Alcohol use disorder
     Dosage: 380 MILLIGRAM, QMO
     Route: 030
     Dates: start: 20201022
  2. VIVITROL [Suspect]
     Active Substance: NALTREXONE
     Indication: Post-traumatic stress disorder
  3. BUPRENORPHINE [Suspect]
     Active Substance: BUPRENORPHINE
     Indication: Alcohol use disorder
     Dosage: 2 MILLIGRAM, QD
     Route: 060
     Dates: start: 20201022
  4. BUPRENORPHINE [Suspect]
     Active Substance: BUPRENORPHINE
     Indication: Post-traumatic stress disorder
  5. ACETAMINOPHEN [Concomitant]
     Active Substance: ACETAMINOPHEN
     Indication: Pain
     Dosage: UNK TAB, BID
     Route: 048
  6. ALBUTEROL [Concomitant]
     Active Substance: ALBUTEROL
     Indication: Chronic obstructive pulmonary disease
     Dosage: 900 MICROGRAM, 2 PUFFS EVERY 4 HOURS, PRN
  7. ALLOPURINOL [Concomitant]
     Active Substance: ALLOPURINOL
     Indication: Gout
     Dosage: 100 MICROGRAM, QD
     Route: 048
  8. APIXABAN [Concomitant]
     Active Substance: APIXABAN
     Indication: Atrial fibrillation
     Dosage: 5 MICROGRAM, QD
     Route: 048
  9. ASPIRIN [Concomitant]
     Active Substance: ASPIRIN
     Indication: Cardiac failure congestive
     Dosage: 81 MICROGRAM, EC
  10. BUDESONIDE\FORMOTEROL [Concomitant]
     Active Substance: BUDESONIDE\FORMOTEROL
     Indication: Chronic obstructive pulmonary disease
     Dosage: 120 DAYS 2 PUFFS
  11. BUSPIRONE [Concomitant]
     Active Substance: BUSPIRONE HYDROCHLORIDE
     Indication: Anxiety
     Dosage: 10 MILLIGRAM, TID
     Route: 048
  12. CARVEDILOL [Concomitant]
     Active Substance: CARVEDILOL
     Indication: Heart rate
     Dosage: 6.25 MICROGRAM, HALF TABLET,  BID
     Route: 048
  13. CARVEDILOL [Concomitant]
     Active Substance: CARVEDILOL
     Indication: Blood pressure measurement
  14. DOCUSATE SODIUM [Concomitant]
     Active Substance: DOCUSATE SODIUM
     Indication: Faeces hard
     Dosage: 250 MILLIGRAM, QD
     Route: 048
  15. FERROUS SULFATE [Concomitant]
     Active Substance: FERROUS SULFATE
     Indication: Blood iron decreased
     Dosage: 1 TABLET ON MONDAYS, WEDNESDAYS, AND FRIDAYS
     Route: 048
  16. FUROSEMIDE [Concomitant]
     Active Substance: FUROSEMIDE
     Indication: Cardiac failure
     Dosage: 80 MILLIGRAM, QD
     Route: 048
  17. GLECAPREVIR\PIBRENTASVIR [Concomitant]
     Active Substance: GLECAPREVIR\PIBRENTASVIR
     Indication: Hepatitis C
     Dosage: 3 TABLETS QD
     Route: 048
  18. ISOSORBIDE DINITRATE [Concomitant]
     Active Substance: ISOSORBIDE DINITRATE
     Indication: Cardiac disorder
     Dosage: 20 MILLIGRAM, ONE-HALF TABLET, BID
     Route: 048
  19. LIDOCAINE [Concomitant]
     Active Substance: LIDOCAINE
     Indication: Pain
     Dosage: PATCH TO SKIN,, Q12H, QD
  20. LOSARTAN [Concomitant]
     Active Substance: LOSARTAN
     Indication: Cardiac disorder
     Dosage: 50 MILLIGRAM, QD
     Route: 048
  21. LOSARTAN [Concomitant]
     Active Substance: LOSARTAN
     Indication: Blood pressure measurement
  22. METHOCARBAMOL [Concomitant]
     Active Substance: METHOCARBAMOL
     Indication: Muscle spasms
     Dosage: 750 MILLIGRAM, TID
  23. MULTIVITAMIN [ASCORBIC ACID;COLECALCIFEROL;NICOTINAMIDE;PYRIDOXINE HYD [Concomitant]
     Indication: Chronic kidney disease
     Dosage: 1 TABLET, QD
     Route: 048
  24. MULTIVITAMIN [ASCORBIC ACID;COLECALCIFEROL;NICOTINAMIDE;PYRIDOXINE HYD [Concomitant]
     Indication: Nutritional supplementation
  25. PRAVASTATIN SODIUM [Concomitant]
     Active Substance: PRAVASTATIN SODIUM
     Indication: Blood cholesterol
     Dosage: 40 MILLIGRAM,ONE HALF TABLET, HS
     Route: 048
  26. SENNOSIDES [Concomitant]
     Active Substance: SENNOSIDES
     Indication: Constipation
     Dosage: 8.6 MILLIGRAM, QD
     Route: 048
  27. SPIRONOLACTONE [Concomitant]
     Active Substance: SPIRONOLACTONE
     Indication: Blood pressure measurement
     Dosage: 25 MILLIGRAM, QD
     Route: 048
  28. TIOTROPIUM BROMIDE [Concomitant]
     Active Substance: TIOTROPIUM BROMIDE
     Indication: Chronic obstructive pulmonary disease
     Dosage: 18 MICROGRAM

REACTIONS (1)
  - Cardiac failure congestive [Recovered/Resolved]

NARRATIVE: CASE EVENT DATE: 20201113
